FAERS Safety Report 11675509 (Version 2)
Quarter: 2015Q4

REPORT INFORMATION
  Report Type: Spontaneous
  Country: US (occurrence: US)
  Receive Date: 20151028
  Receipt Date: 20151229
  Transmission Date: 20160304
  Serious: Yes (Hospitalization)
  Sender: FDA-Public Use
  Company Number: US-BAYER-2015-452912

PATIENT
  Age: 20 Year
  Sex: Female
  Weight: 81.63 kg

DRUGS (1)
  1. MIRENA [Suspect]
     Active Substance: LEVONORGESTREL
     Indication: CONTRACEPTION
     Dosage: 20 MCG/24HR, CONT
     Route: 015
     Dates: start: 20111128, end: 20140309

REACTIONS (6)
  - Ectopic pregnancy with contraceptive device [None]
  - Drug ineffective [None]
  - Embedded device [None]
  - Medical device pain [None]
  - Ruptured ectopic pregnancy [None]
  - Mobility decreased [None]

NARRATIVE: CASE EVENT DATE: 201403
